FAERS Safety Report 5929322-X (Version None)
Quarter: 2008Q4

REPORT INFORMATION
  Report Type: 
  Country: None (occurrence: None)
  Receive Date: 20081024
  Receipt Date: 20081022
  Transmission Date: 20090506
  Serious: Yes (Other)
  Sender: FDA-Public Use
  Company Number: JP-ASTRAZENECA-2008AP08097

PATIENT
  Age: 58 Year
  Sex: Female

DRUGS (3)
  1. NAROPIN [Suspect]
     Indication: NERVE BLOCK
     Dosage: 0.2% ROPIVACAINE 40 MG AND 0.75% ROPIVACAINE 75 MG.
     Route: 053
  2. OXYGEN [Concomitant]
     Indication: GENERAL ANAESTHESIA
     Dosage: DOSE UNKNOWN
     Route: 055
  3. SEVOFLURANE [Concomitant]
     Indication: GENERAL ANAESTHESIA
     Dosage: DOSE UNKNOWN
     Route: 055

REACTIONS (1)
  - ANAESTHETIC COMPLICATION [None]
